FAERS Safety Report 8034097-7 (Version None)
Quarter: 2011Q4

REPORT INFORMATION
  Report Type: 
  Country: None (occurrence: None)
  Receive Date: 20111202
  Receipt Date: 20100713
  Transmission Date: 20120403
  Serious: Yes (Hospitalization, Other)
  Sender: FDA-Public Use
  Company Number: 2010SP038514

PATIENT
  Age: 44 Year
  Sex: Female
  Weight: 67.1324 kg

DRUGS (2)
  1. NUVARING [Suspect]
     Indication: DYSFUNCTIONAL UTERINE BLEEDING
     Dates: start: 20080627, end: 20080715
  2. NUVARING [Suspect]
     Indication: MENSTRUAL DISORDER
     Dates: start: 20080627, end: 20080715

REACTIONS (5)
  - PULMONARY EMBOLISM [None]
  - PULMONARY INFARCTION [None]
  - PLEURISY [None]
  - DEEP VEIN THROMBOSIS [None]
  - METRORRHAGIA [None]
